FAERS Safety Report 12172286 (Version 1)
Quarter: 2016Q1

REPORT INFORMATION
  Report Type: Report from Study
  Country: US (occurrence: US)
  Receive Date: 20160311
  Receipt Date: 20160311
  Transmission Date: 20160526
  Serious: Yes (Hospitalization)
  Sender: FDA-Public Use
  Company Number: US-BIOGEN-2014BI008820

PATIENT
  Age: 64 Year
  Sex: Female

DRUGS (2)
  1. AVONEX [Suspect]
     Active Substance: INTERFERON BETA-1A
     Route: 030
     Dates: start: 20130517
  2. AVONEX [Suspect]
     Active Substance: INTERFERON BETA-1A
     Indication: MULTIPLE SCLEROSIS
     Route: 030
     Dates: start: 20010126, end: 20091101

REACTIONS (36)
  - Fall [Recovered/Resolved]
  - Skeletal injury [Recovered/Resolved]
  - Balance disorder [Recovered/Resolved]
  - Migraine [Unknown]
  - Tremor [Unknown]
  - Muscular weakness [Unknown]
  - Back pain [Recovered/Resolved]
  - Musculoskeletal pain [Recovered/Resolved]
  - Influenza like illness [Recovered/Resolved]
  - Dyspnoea [Recovered/Resolved]
  - Incontinence [Unknown]
  - Vein disorder [Unknown]
  - Hip fracture [Recovered/Resolved]
  - Arthralgia [Recovered/Resolved]
  - Visual impairment [Recovered/Resolved]
  - Injection site haemorrhage [Recovered/Resolved]
  - Gait disturbance [Not Recovered/Not Resolved]
  - Hand fracture [Unknown]
  - Malaise [Unknown]
  - Mobility decreased [Unknown]
  - Contusion [Recovered/Resolved]
  - Iron deficiency anaemia [Unknown]
  - Cough [Unknown]
  - Pneumonia [Recovered/Resolved]
  - Limb injury [Recovered/Resolved]
  - Upper limb fracture [Unknown]
  - Road traffic accident [Recovered/Resolved]
  - Nausea [Unknown]
  - Injection site coldness [Recovered/Resolved]
  - Haemorrhage [Recovered/Resolved]
  - Irritability [Recovered/Resolved]
  - Stress [Unknown]
  - Fatigue [Recovered/Resolved]
  - Diarrhoea [Recovered/Resolved]
  - Paraesthesia [Unknown]
  - Wheezing [Unknown]

NARRATIVE: CASE EVENT DATE: 2008
